FAERS Safety Report 9159980 (Version 1)
Quarter: 2013Q1

REPORT INFORMATION
  Report Type: Spontaneous
  Country: IT (occurrence: None)
  Receive Date: 20130220
  Receipt Date: 20130220
  Transmission Date: 20140127
  Serious: Yes (Hospitalization)
  Sender: FDA-Public Use
  Company Number: DSM-2013-00240

PATIENT
  Age: 76 Year
  Sex: Male

DRUGS (7)
  1. OLPREZIDE (HYDROCHLOROTHIAZIDE, OLMESARTAN MEDOXOMIL) TABLET (HYDROCHLOROTHIAZIDE, OLMESARTAN MEDOXOMIL) (TABLET) [Suspect]
     Indication: ESSENTIAL HYPERTENSION
     Route: 048
     Dates: start: 20110101, end: 20120909
  2. LIBRADIN (BARNIDIPINE HYDROCHLORIDE)(BARNIDIPINE HYDROCHLORIDE) [Suspect]
     Indication: ESSENTIAL HYPERTENSION
     Route: 048
     Dates: start: 20110101, end: 20120909
  3. TOTALIP (ATORVASTATIN CALCIUM)(ATORVASTATIN CALCIUM) [Concomitant]
  4. BENERVA (THIAMINE HYDROCHLORIDE)(THIAMINE HYDROCHLORIDE) [Concomitant]
  5. CARDIRENE (ACETYLSALICYLATE LYSINE)(ACETYLSALICYLATE LYSINE) [Concomitant]
  6. TRITTICO (TRAZODONE HYDROCHLORIDE)(TRAZODONE HYDROCHLORIDE) [Concomitant]
  7. CIPRALEX (ESCITALOPRAM OXALATE)(ESCITALOPRAM OXALATE) [Concomitant]

REACTIONS (3)
  - Hypotension [None]
  - Renal failure [None]
  - Enteritis [None]
